FAERS Safety Report 9536792 (Version 1)
Quarter: 2013Q2

REPORT INFORMATION
  Report Type: Spontaneous
  Country: US (occurrence: None)
  Receive Date: 20130507
  Receipt Date: 20130507
  Transmission Date: 20140414
  Serious: No
  Sender: FDA-Public Use
  Company Number: PHEH2012US024809

PATIENT
  Sex: Female
  Weight: 86.2 kg

DRUGS (14)
  1. AFINITOR [Suspect]
     Indication: CARCINOID TUMOUR
     Route: 048
     Dates: start: 201204
  2. CHROMIUM [Concomitant]
  3. CALCIUM [Concomitant]
  4. VITAMIN B12 (CYANOCOBALAMIN) [Concomitant]
  5. MELATONIN (MELATONIN) [Concomitant]
  6. CO Q-10 (UBIDECARENONE) [Concomitant]
  7. BIOTIN FORTE 9ASCORBIC ACID, BIOTIN, CALCIUM PANTOTHENATE, CYANOCOBALAMIN, FOLIC ACID, NICOTINAMIDE, PYRIDOXINE HYDROCHLORIDE, RIBOFLAVIN, THIAMINE HYDROCHLORIDE, ZINC) [Concomitant]
  8. DIOVAN HCT (HYDROCHLOROTHIAZIDE, VALSARTAN) [Concomitant]
  9. POTASSIUM [Concomitant]
  10. METFORMIN [Concomitant]
  11. FLEXERIL (CYCLOBENZAPRINE HYDROCHLORIDE) [Concomitant]
  12. HYDROMORPHONE [Concomitant]
  13. PROCHLORPERAZ (PROCHLORPERAZINE MALEATE) [Concomitant]
  14. HYDROCODONE W/APAP (HYDROCODONE, PARACETAMOL) [Concomitant]

REACTIONS (2)
  - Blood glucose increased [None]
  - Stomatitis [None]
